FAERS Safety Report 6671731-8 (Version None)
Quarter: 2010Q2

REPORT INFORMATION
  Report Type: 
  Country: None (occurrence: None)
  Receive Date: 20100406
  Receipt Date: 20100406
  Transmission Date: 20101027
  Serious: Yes (Other)
  Sender: FDA-Public Use
  Company Number: None

PATIENT
  Age: 21 Year
  Sex: Male
  Weight: 72.5755 kg

DRUGS (1)
  1. OXYCODONE IMMEDIATE RELEASE 5MG QUALITEST [Suspect]
     Indication: SURGERY
     Dosage: 5MG Q4 HOURS PO
     Route: 048
     Dates: start: 20090803, end: 20100402

REACTIONS (1)
  - AMNESIA [None]
